FAERS Safety Report 17959439 (Version 2)
Quarter: 2020Q3

REPORT INFORMATION
  Report Type: Spontaneous
  Country: NL (occurrence: NL)
  Receive Date: 20200630
  Receipt Date: 20200824
  Transmission Date: 20201103
  Serious: Yes (Death, Other)
  Sender: FDA-Public Use
  Company Number: NL-AMGEN-NLDSP2020103521

PATIENT
  Age: 8 Year
  Sex: Female

DRUGS (5)
  1. METHOTREXATE. [Concomitant]
     Active Substance: METHOTREXATE
     Indication: JUVENILE IDIOPATHIC ARTHRITIS
     Dosage: 2.5 MG
     Route: 065
  2. METHYLPREDNISOLONE. [Concomitant]
     Active Substance: METHYLPREDNISOLONE
     Indication: JUVENILE IDIOPATHIC ARTHRITIS
     Dosage: UNK
     Route: 065
  3. ENBREL [Suspect]
     Active Substance: ETANERCEPT
     Dosage: 0.8 MG/KG, 2X/WEEK
     Route: 065
     Dates: end: 200201
  4. REMICADE [Suspect]
     Active Substance: INFLIXIMAB
     Indication: JUVENILE IDIOPATHIC ARTHRITIS
     Dosage: 20 MILLIGRAM/KILOGRAM, QMO
     Route: 065
     Dates: start: 200201
  5. ENBREL [Suspect]
     Active Substance: ETANERCEPT
     Indication: STILL^S DISEASE
     Dosage: 0.4 MG/KG, 2X/WEEK
     Route: 065
     Dates: start: 2001

REACTIONS (10)
  - Off label use [Unknown]
  - Respiratory failure [Fatal]
  - Diffuse alveolar damage [Fatal]
  - Cardiac arrest [Not Recovered/Not Resolved]
  - Drug ineffective [Unknown]
  - Shock [Fatal]
  - Cutaneous tuberculosis [Unknown]
  - Pneumonia lipoid [Fatal]
  - Circulatory collapse [Fatal]
  - Lung infiltration [Fatal]
